FAERS Safety Report 23370011 (Version 2)
Quarter: 2024Q1

REPORT INFORMATION
  Report Type: Report from Study
  Country: US (occurrence: US)
  Receive Date: 20240105
  Receipt Date: 20240208
  Transmission Date: 20240409
  Serious: No
  Sender: FDA-Public Use
  Company Number: US-BIOVITRUM-2023-US-021619

PATIENT
  Age: 69 Year
  Sex: Male

DRUGS (3)
  1. DOPTELET [Suspect]
     Active Substance: AVATROMBOPAG MALEATE
     Indication: Immune thrombocytopenia
     Dosage: ONCE DAILY
     Route: 048
     Dates: start: 20231110
  2. DOPTELET [Suspect]
     Active Substance: AVATROMBOPAG MALEATE
     Dosage: 20 MG ALTERNATING WITH 40MG
     Route: 048
  3. DOPTELET [Suspect]
     Active Substance: AVATROMBOPAG MALEATE
     Dosage: DAILY
     Route: 048

REACTIONS (5)
  - Lethargy [Unknown]
  - Drug ineffective [Unknown]
  - Platelet count abnormal [Unknown]
  - Fatigue [Unknown]
  - Loss of personal independence in daily activities [Unknown]
